FAERS Safety Report 9603019 (Version 2)
Quarter: 2013Q4

REPORT INFORMATION
  Report Type: Report from Study
  Country: US (occurrence: US)
  Receive Date: 20131007
  Receipt Date: 20131007
  Transmission Date: 20140711
  Serious: Yes (Death)
  Sender: FDA-Public Use
  Company Number: US-ACTELION-A-NJ2013-87669

PATIENT
  Age: 67 Year
  Sex: Male

DRUGS (4)
  1. TRACLEER [Suspect]
     Indication: PULMONARY ARTERIAL HYPERTENSION
     Dosage: UNK
     Route: 048
  2. SILDENAFIL [Concomitant]
  3. COUMADIN [Concomitant]
  4. OXYGEN [Concomitant]
     Dosage: UNK

REACTIONS (5)
  - Death [Fatal]
  - Dizziness [Unknown]
  - Fluid retention [Unknown]
  - Cough [Unknown]
  - Wheelchair user [Unknown]
